FAERS Safety Report 6905794-9 (Version None)
Quarter: 2010Q3

REPORT INFORMATION
  Report Type: 
  Country: None (occurrence: None)
  Receive Date: 20100804
  Receipt Date: 20100723
  Transmission Date: 20110219
  Serious: Yes (Life-Threatening, Hospitalization)
  Sender: FDA-Public Use
  Company Number: FR-WYE-H16596510

PATIENT
  Age: 85 Year
  Sex: Male

DRUGS (8)
  1. CORDARONE [Suspect]
     Indication: CARDIAC FAILURE
     Dosage: NOT PROVIDED
     Dates: start: 20100423
  2. NEBIVOLOL HYDROCHLORIDE [Interacting]
     Indication: CARDIAC FAILURE
     Route: 048
  3. SALMETEROL [Concomitant]
     Dosage: DOSE NOT PROVIDED
  4. PREVISCAN [Concomitant]
     Dosage: DOSE NOT PROVIDED
  5. COZAAR [Concomitant]
     Dosage: DOSE NOT PROVIDED
  6. FLUTICASONE PROPIONATE [Concomitant]
     Dosage: DOSE NOT PROVIDED
  7. DILTIAZEM [Interacting]
     Indication: CARDIAC FAILURE
     Dosage: 300 MG, DAILY DOSE NOT PROVIDED
     Route: 048
  8. DIFFU K [Concomitant]
     Dosage: DOSE NOT PROVIDED

REACTIONS (5)
  - CARDIO-RESPIRATORY ARREST [None]
  - COMA [None]
  - DRUG INTERACTION [None]
  - TORSADE DE POINTES [None]
  - VENTRICULAR TACHYCARDIA [None]
